FAERS Safety Report 9499113 (Version 2)
Quarter: 2013Q3

REPORT INFORMATION
  Report Type: Spontaneous
  Country: US (occurrence: US)
  Receive Date: 20130904
  Receipt Date: 20130927
  Transmission Date: 20140515
  Serious: Yes (Disabling)
  Sender: FDA-Public Use
  Company Number: US-009507513-1308USA014016

PATIENT
  Age: 27 Year
  Sex: Female

DRUGS (2)
  1. NEXPLANON [Suspect]
     Indication: CONTRACEPTION
     Dosage: 68 MG, 3 YEAR IMPLANT
     Route: 059
     Dates: start: 20120914, end: 201308
  2. NEXPLANON [Suspect]
     Dosage: UNK
     Route: 059
     Dates: start: 201308

REACTIONS (3)
  - Implant site pruritus [Recovered/Resolved]
  - Device kink [Recovered/Resolved]
  - Device breakage [Recovered/Resolved]
